FAERS Safety Report 7598333-3 (Version None)
Quarter: 2011Q3

REPORT INFORMATION
  Report Type: 
  Country: None (occurrence: None)
  Receive Date: 20110708
  Receipt Date: 20110627
  Transmission Date: 20111222
  Serious: Yes (Other)
  Sender: FDA-Public Use
  Company Number: PHHY2011US56695

PATIENT
  Sex: Female

DRUGS (2)
  1. VIVELLE-DOT [Suspect]
     Dosage: 0.05 MG, UNK
     Route: 062
  2. BENADRYL [Concomitant]
     Dosage: UNK UKN, UNK

REACTIONS (11)
  - HYPERSENSITIVITY [None]
  - LOSS OF CONSCIOUSNESS [None]
  - BURNING SENSATION [None]
  - PRURITUS [None]
  - EYE SWELLING [None]
  - PARAESTHESIA ORAL [None]
  - GASTROINTESTINAL HYPERMOTILITY [None]
  - DIZZINESS [None]
  - VISUAL IMPAIRMENT [None]
  - VISION BLURRED [None]
  - DRY MOUTH [None]
